FAERS Safety Report 5736915-1 (Version None)
Quarter: 2008Q2

REPORT INFORMATION
  Report Type: 
  Country: None (occurrence: None)
  Receive Date: 20080509
  Receipt Date: 20080424
  Transmission Date: 20081010
  Serious: Yes (Other)
  Sender: FDA-Public Use
  Company Number: CA-1165975

PATIENT

DRUGS (1)
  1. ISOPTO HOMATROPINE (HOMATROPINE HYDROBROMIDE) 5 % SOLUTION EYE DROPS, [Suspect]
     Dosage: 1 GTT BID
     Route: 047
     Dates: start: 20080219, end: 20080424

REACTIONS (4)
  - ACCIDENTAL EXPOSURE [None]
  - LETHARGY [None]
  - PROCEDURAL COMPLICATION [None]
  - SOMNOLENCE [None]
